FAERS Safety Report 23443118 (Version 1)
Quarter: 2024Q1

REPORT INFORMATION
  Report Type: Spontaneous
  Country: US (occurrence: None)
  Receive Date: 20240125
  Receipt Date: 20240125
  Transmission Date: 20240410
  Serious: Yes (Other)
  Sender: FDA-Public Use
  Company Number: None

PATIENT
  Age: 36 Year
  Sex: Female
  Weight: 58.97 kg

DRUGS (3)
  1. MOUNJARO [Suspect]
     Active Substance: TIRZEPATIDE
     Indication: Weight decreased
     Route: 058
     Dates: start: 202210
  2. NP THYROID [Concomitant]
  3. LEXAPRO [Concomitant]
     Active Substance: ESCITALOPRAM OXALATE

REACTIONS (11)
  - Hypoaesthesia oral [None]
  - Heart rate increased [None]
  - Nephrolithiasis [None]
  - Renal pain [None]
  - Food allergy [None]
  - Anxiety [None]
  - Loss of personal independence in daily activities [None]
  - Impaired work ability [None]
  - Weight decreased [None]
  - Gastrointestinal inflammation [None]
  - Drug ineffective [None]

NARRATIVE: CASE EVENT DATE: 20231024
